FAERS Safety Report 5221054-9 (Version None)
Quarter: 2007Q1

REPORT INFORMATION
  Report Type: 
  Country: None (occurrence: None)
  Receive Date: 20070123
  Receipt Date: 20070112
  Transmission Date: 20070707
  Serious: Yes (Hospitalization)
  Sender: FDA-Public Use
  Company Number: 235176

PATIENT
  Age: 78 Year
  Sex: Male
  Weight: 79.8 kg

DRUGS (3)
  1. AVASTIN [Suspect]
     Indication: COLORECTAL CANCER METASTATIC
     Dosage: 630 MG, Q3W, INTRAVENOUS
     Route: 042
     Dates: start: 20061025
  2. CAPECITABINE (CAPECITABINE) [Suspect]
     Indication: COLORECTAL CANCER METASTATIC
     Dosage: 1800 MG, ORAL
     Route: 048
     Dates: start: 20061025
  3. OXALIPLATIN [Suspect]
     Indication: COLORECTAL CANCER METASTATIC
     Dosage: 260 MG, Q3W, INTRAVENOUS
     Route: 042
     Dates: start: 20061025

REACTIONS (7)
  - CERVICAL SPINAL STENOSIS [None]
  - EXTENSOR PLANTAR RESPONSE [None]
  - LUMBAR SPINAL STENOSIS [None]
  - MUSCULAR WEAKNESS [None]
  - PARAESTHESIA [None]
  - SPINAL CORD DISORDER [None]
  - URINARY RETENTION [None]
